FAERS Safety Report 7831211-0 (Version None)
Quarter: 2011Q4

REPORT INFORMATION
  Report Type: 
  Country: None (occurrence: None)
  Receive Date: 20111021
  Receipt Date: 20111013
  Transmission Date: 20120403
  Serious: Yes (Hospitalization)
  Sender: FDA-Public Use
  Company Number: IT-MPIJNJ-2011-04907

PATIENT

DRUGS (1)
  1. VELCADE [Suspect]
     Indication: MULTIPLE MYELOMA
     Dosage: 2 UNK, UNK
     Route: 065
     Dates: start: 20090609, end: 20091109

REACTIONS (1)
  - INFLUENZA [None]
